FAERS Safety Report 6149146-0 (Version None)
Quarter: 2009Q2

REPORT INFORMATION
  Report Type: 
  Country: None (occurrence: None)
  Receive Date: 20090407
  Receipt Date: 20090330
  Transmission Date: 20091009
  Serious: Yes (Other)
  Sender: FDA-Public Use
  Company Number: US-SEPTODONT200900076

PATIENT
  Age: 23 Year
  Sex: Male

DRUGS (1)
  1. SEPTOCAINE [Suspect]
     Indication: LOCAL ANAESTHESIA
     Dosage: DENTAL CARTRIDGES
     Route: 004

REACTIONS (6)
  - ASTHENIA [None]
  - BLOOD PRESSURE INCREASED [None]
  - CHEST PAIN [None]
  - COLD SWEAT [None]
  - HYPOGLYCAEMIA [None]
  - NAUSEA [None]
